FAERS Safety Report 8377927-1 (Version None)
Quarter: 2012Q2

REPORT INFORMATION
  Report Type: 
  Country: None (occurrence: None)
  Receive Date: 20120522
  Receipt Date: 20120515
  Transmission Date: 20120825
  Serious: Yes (Other)
  Sender: FDA-Public Use
  Company Number: CHPA2012US010503

PATIENT
  Sex: Female

DRUGS (3)
  1. ANTIHYPERTENSIVES [Concomitant]
  2. DRUG THERAPY NOS [Concomitant]
     Indication: BLOOD CHOLESTEROL INCREASED
  3. PREVACID 24 HR [Suspect]
     Indication: GASTROOESOPHAGEAL REFLUX DISEASE
     Dosage: 15 MG, PRN
     Route: 048
     Dates: start: 20090101

REACTIONS (12)
  - THERAPEUTIC RESPONSE UNEXPECTED [None]
  - MENTAL IMPAIRMENT [None]
  - NERVOUSNESS [None]
  - OFF LABEL USE [None]
  - IMPAIRED DRIVING ABILITY [None]
  - VOMITING [None]
  - MALAISE [None]
  - ACCIDENT [None]
  - CONVERSION DISORDER [None]
  - TREMOR [None]
  - GASTROOESOPHAGEAL REFLUX DISEASE [None]
  - TREATMENT NONCOMPLIANCE [None]
